FAERS Safety Report 14898387 (Version 2)
Quarter: 2018Q2

REPORT INFORMATION
  Report Type: Spontaneous
  Country: US (occurrence: US)
  Receive Date: 20180515
  Receipt Date: 20180517
  Transmission Date: 20180711
  Serious: No
  Sender: FDA-Public Use
  Company Number: US-SA-2018SA085737

PATIENT
  Age: 71 Year
  Sex: Male

DRUGS (2)
  1. TOUJEO [Suspect]
     Active Substance: INSULIN GLARGINE
     Dosage: BEGAN TAKING TOUJEO; 200 UNITS NIGHTLY, ABOUT 2 WEEKS AGO DOSE:200 UNIT(S)
     Route: 065
     Dates: start: 201803
  2. SOLOSTAR [Suspect]
     Active Substance: DEVICE
     Dates: start: 201803

REACTIONS (1)
  - Diarrhoea [Unknown]

NARRATIVE: CASE EVENT DATE: 201803
